FAERS Safety Report 12235231 (Version 4)
Quarter: 2018Q4

REPORT INFORMATION
  Report Type: Spontaneous
  Country: US (occurrence: US)
  Receive Date: 20160404
  Receipt Date: 20181129
  Transmission Date: 20190204
  Serious: Yes (Other)
  Sender: FDA-Public Use
  Company Number: US-PFIZER INC-2016169252

PATIENT
  Sex: Female

DRUGS (1)
  1. NEURONTIN [Suspect]
     Active Substance: GABAPENTIN
     Indication: EPILEPSY
     Dosage: 2700 MG, DAILY

REACTIONS (9)
  - Pain [Unknown]
  - Seizure [Recovered/Resolved]
  - Joint injury [Unknown]
  - Fall [Unknown]
  - Cardiac disorder [Unknown]
  - Hypoacusis [Unknown]
  - Malaise [Unknown]
  - Cerebrovascular accident [Unknown]
  - Alopecia [Unknown]
